FAERS Safety Report 9172784 (Version 1)
Quarter: 2012Q4

REPORT INFORMATION
  Report Type: Report from Study
  Country: BR (occurrence: BR)
  Receive Date: 20120911
  Receipt Date: 20120911
  Transmission Date: 20130627
  Serious: Yes (Other)
  Sender: FDA-Public Use
  Company Number: BR-ROCHE-1094388

PATIENT
  Sex: Female
  Weight: 78 kg

DRUGS (7)
  1. ROACTEMRA [Suspect]
     Indication: RHEUMATOID ARTHRITIS
     Route: 042
     Dates: start: 20120723
  2. ROACTEMRA [Suspect]
     Route: 065
     Dates: start: 20120905
  3. POLARAMINE [Concomitant]
     Indication: PREMEDICATION
  4. CALCORT [Concomitant]
  5. ALLEGRA-D [Concomitant]
  6. PONSTAN [Concomitant]
  7. HIXIZINE [Concomitant]

REACTIONS (3)
  - Laryngeal oedema [Recovered/Resolved]
  - Erythema [Recovering/Resolving]
  - Pruritus [Recovering/Resolving]
